FAERS Safety Report 5262363-7 (Version None)
Quarter: 2007Q1

REPORT INFORMATION
  Report Type: 
  Country: None (occurrence: None)
  Receive Date: 20070308
  Receipt Date: 20070220
  Transmission Date: 20070707
  Serious: Yes (Hospitalization, Other)
  Sender: FDA-Public Use
  Company Number: 15786

PATIENT
  Age: 40 Year
  Sex: Female
  Weight: 58 kg

DRUGS (9)
  1. METHOTREXATE [Suspect]
  2. REMICADE [Suspect]
     Indication: RHEUMATOID ARTHRITIS
     Dosage: 174 MG FREQ UNK IV
     Route: 042
     Dates: start: 20030225, end: 20060207
  3. ADCAL-D3 [Concomitant]
  4. FOLIC ACID [Concomitant]
  5. ACETAMINOPHEN [Concomitant]
  6. RISEDRONATE SODIUM [Concomitant]
  7. SANDOCAL [Concomitant]
  8. SULFASALAZINE [Concomitant]
  9. VOLTAREN [Concomitant]

REACTIONS (6)
  - BETA HAEMOLYTIC STREPTOCOCCAL INFECTION [None]
  - BRAIN ABSCESS [None]
  - CEREBRAL INFARCTION [None]
  - INTERVERTEBRAL DISCITIS [None]
  - PSOAS ABSCESS [None]
  - SEPSIS [None]
